FAERS Safety Report 25533285 (Version 1)
Quarter: 2025Q3

REPORT INFORMATION
  Report Type: Other
  Country: GB (occurrence: GB)
  Receive Date: 20250709
  Receipt Date: 20250709
  Transmission Date: 20251021
  Serious: Yes (Other)
  Sender: MACLEODS
  Company Number: None

PATIENT

DRUGS (1)
  1. ROSUVASTATIN [Suspect]
     Active Substance: ROSUVASTATIN
     Indication: Blood cholesterol increased
     Dosage: 5MG ONCE A DAY
     Route: 065
     Dates: start: 20250513, end: 20250628

REACTIONS (2)
  - Haemorrhoids [Unknown]
  - Constipation [Recovered/Resolved with Sequelae]
